FAERS Safety Report 16441432 (Version 1)
Quarter: 2019Q2

REPORT INFORMATION
  Report Type: Report from Study
  Country: US (occurrence: US)
  Receive Date: 20190617
  Receipt Date: 20190617
  Transmission Date: 20190711
  Serious: Yes (Hospitalization)
  Sender: FDA-Public Use
  Company Number: US-BAYER-2019-091711

PATIENT
  Age: 80 Year
  Sex: Male

DRUGS (4)
  1. SUTENT [Suspect]
     Active Substance: SUNITINIB MALATE
     Indication: GASTROINTESTINAL STROMAL TUMOUR
     Dosage: 80MG DAILY FOR 21 DAYS OF 28 DAY CYCLE
     Dates: end: 20190514
  2. STIVARGA [Suspect]
     Active Substance: REGORAFENIB
     Indication: GASTROINTESTINAL STROMAL TUMOUR
     Dosage: 80 MG DAILY (FOR 21 DAYS OF A 28 DAY CYCLE)
     Route: 048
     Dates: start: 20190501, end: 20190502
  3. STIVARGA [Suspect]
     Active Substance: REGORAFENIB
     Indication: GASTROINTESTINAL STROMAL TUMOUR
     Dosage: DAILY DOSE 80 MG (FOR 21 DAYS OF 28 DAY CYCLE)
     Route: 048
     Dates: start: 20190508
  4. STIVARGA [Suspect]
     Active Substance: REGORAFENIB
     Indication: GASTROINTESTINAL STROMAL TUMOUR
     Dosage: DAILY DOSE 40 MG
     Route: 048
     Dates: start: 2019, end: 2019

REACTIONS (14)
  - Off label use [None]
  - Nausea [Unknown]
  - Vomiting [Unknown]
  - Chest pain [Recovered/Resolved]
  - Intentional product use issue [None]
  - Peripheral swelling [Unknown]
  - Gout [Unknown]
  - Erythema [Unknown]
  - Yellow skin [Unknown]
  - Dehydration [Unknown]
  - Pain in extremity [Recovered/Resolved]
  - Gait inability [Unknown]
  - Peripheral swelling [Recovered/Resolved]
  - Oedema peripheral [Not Recovered/Not Resolved]

NARRATIVE: CASE EVENT DATE: 201905
